FAERS Safety Report 7360223-9 (Version None)
Quarter: 2011Q1

REPORT INFORMATION
  Report Type: 
  Country: None (occurrence: None)
  Receive Date: 20110307
  Receipt Date: 20110221
  Transmission Date: 20110831
  Serious: Yes (Hospitalization)
  Sender: FDA-Public Use
  Company Number: 2011AP000303

PATIENT
  Age: 59 Year
  Sex: Male

DRUGS (5)
  1. DILTIAZEM HYDROCHLORIDE [Suspect]
     Indication: ANGINA PECTORIS
     Dosage: 30 MG;BID; PO
     Route: 048
  2. DILTIAZEM HYDROCHLORIDE [Suspect]
     Indication: CORONARY ARTERY DISEASE
     Dosage: 30 MG;BID; PO
     Route: 048
  3. SIMVASTATIN [Suspect]
     Indication: HYPERCHOLESTEROLAEMIA
     Dosage: 20 MG;HS; PO
     Route: 048
  4. SIMVASTATIN [Suspect]
     Indication: CORONARY ARTERY DISEASE
     Dosage: 20 MG;HS; PO
     Route: 048
  5. ASPIRIN [Concomitant]

REACTIONS (6)
  - RHABDOMYOLYSIS [None]
  - HYPOTHYROIDISM [None]
  - DRUG INTERACTION [None]
  - BLOOD CREATININE INCREASED [None]
  - EYELID OEDEMA [None]
  - THYROID ATROPHY [None]
